FAERS Safety Report 5263387-6 (Version None)
Quarter: 2007Q1

REPORT INFORMATION
  Report Type: 
  Country: None (occurrence: None)
  Receive Date: 20070309
  Receipt Date: 20070309
  Transmission Date: 20070707
  Serious: Yes (Other)
  Sender: FDA-Public Use
  Company Number: None

PATIENT
  Age: 23 Year
  Sex: Female
  Weight: 63.5036 kg

DRUGS (1)
  1. TRI-SPRINTEC [Suspect]
     Indication: CONTRACEPTION
     Dosage: 1 PILL  DAILY  PO
     Route: 048
     Dates: start: 20061001, end: 20061231

REACTIONS (12)
  - BREAST PAIN [None]
  - DRY SKIN [None]
  - HEADACHE [None]
  - IMPAIRED WORK ABILITY [None]
  - MENSTRUATION IRREGULAR [None]
  - METRORRHAGIA [None]
  - NAUSEA [None]
  - PAIN [None]
  - PHARMACEUTICAL PRODUCT COMPLAINT [None]
  - SKIN DISORDER [None]
  - VOMITING [None]
  - WEIGHT INCREASED [None]
